FAERS Safety Report 4330949-X (Version None)
Quarter: 2004Q1

REPORT INFORMATION
  Report Type: 
  Country: None (occurrence: None)
  Receive Date: 20040329
  Receipt Date: 20040316
  Transmission Date: 20041129
  Serious: Yes (Hospitalization)
  Sender: FDA-Public Use
  Company Number: B0327264A

PATIENT
  Age: 73 Year
  Sex: Male

DRUGS (5)
  1. VALTREX [Suspect]
     Indication: HERPES ZOSTER
     Dosage: 1 GRAMS (S)/THREE TIMES PER DAY/
  2. TRAMADOL HCL [Concomitant]
  3. ACETAMINOPHEN [Concomitant]
  4. ALBUTEROL SULFATE [Concomitant]
  5. IPRATROPIUM BROMIDE [Concomitant]

REACTIONS (12)
  - CLOSTRIDIUM COLITIS [None]
  - CONFUSIONAL STATE [None]
  - DRY SKIN [None]
  - HAEMATOCRIT DECREASED [None]
  - HEART RATE INCREASED [None]
  - MALNUTRITION [None]
  - MUCOSAL DRYNESS [None]
  - NEPHROLITHIASIS [None]
  - PLATELET COUNT DECREASED [None]
  - PROTEIN URINE PRESENT [None]
  - RED BLOOD CELLS URINE [None]
  - WHITE BLOOD CELL COUNT INCREASED [None]
